FAERS Safety Report 15007501 (Version 1)
Quarter: 2018Q2

REPORT INFORMATION
  Report Type: Spontaneous
  Country: US (occurrence: US)
  Receive Date: 20180613
  Receipt Date: 20180613
  Transmission Date: 20180711
  Serious: Yes (Other)
  Sender: FDA-Public Use
  Company Number: US-SAOL THERAPEUTICS-0701150711

PATIENT
  Age: 12 Year
  Sex: Female

DRUGS (2)
  1. LIORESAL [Suspect]
     Active Substance: BACLOFEN
     Dosage: 250 ?G, \DAY
     Route: 037
  2. LIORESAL [Suspect]
     Active Substance: BACLOFEN
     Dosage: 298.8 ?G, \DAY
     Route: 037

REACTIONS (9)
  - Medical device site calcification [Unknown]
  - Drug withdrawal syndrome [Recovering/Resolving]
  - Medical device site infection [Recovering/Resolving]
  - Therapeutic response decreased [Recovering/Resolving]
  - Therapy non-responder [Recovering/Resolving]
  - Muscle spasticity [Recovering/Resolving]
  - Pruritus [Recovering/Resolving]
  - Device occlusion [Unknown]
  - Medical device site fibrosis [Unknown]

NARRATIVE: CASE EVENT DATE: 201511
